FAERS Safety Report 14738554 (Version 1)
Quarter: 2018Q2

REPORT INFORMATION
  Report Type: Spontaneous
  Country: US (occurrence: US)
  Receive Date: 20180409
  Receipt Date: 20180409
  Transmission Date: 20180711
  Serious: Yes (Other)
  Sender: FDA-Public Use
  Company Number: US-PFIZER INC-2018141947

PATIENT
  Age: 65 Year
  Sex: Male

DRUGS (1)
  1. VENLAFAXINE HCL [Suspect]
     Active Substance: VENLAFAXINE HYDROCHLORIDE
     Dosage: UNK

REACTIONS (6)
  - Anxiety [Unknown]
  - Apathy [Unknown]
  - Mental impairment [Unknown]
  - Emotional disorder [Unknown]
  - Irritability [Unknown]
  - Insomnia [Unknown]
